FAERS Safety Report 4424638-0 (Version None)
Quarter: 2004Q3

REPORT INFORMATION
  Report Type: 
  Country: None (occurrence: None)
  Receive Date: 20040809
  Receipt Date: 20040726
  Transmission Date: 20050211
  Serious: Yes (Other)
  Sender: FDA-Public Use
  Company Number: US-2004-029419

PATIENT
  Sex: Female

DRUGS (2)
  1. CLIMARA [Suspect]
     Indication: HORMONE REPLACEMENT THERAPY
     Dosage: 0.05 MG/D, TRANSDERMAL
     Route: 062
     Dates: start: 20040401
  2. AMITRIPTYLINE HCL [Concomitant]

REACTIONS (2)
  - KIDNEY INFECTION [None]
  - NEPHROLITHIASIS [None]
